FAERS Safety Report 10878923 (Version 1)
Quarter: 2015Q1

REPORT INFORMATION
  Report Type: Spontaneous
  Country: GB (occurrence: GB)
  Receive Date: 20150302
  Receipt Date: 20150302
  Transmission Date: 20150721
  Serious: Yes (Death, Other)
  Sender: FDA-Public Use
  Company Number: PHHY2015GB023561

PATIENT
  Age: 17 Year
  Sex: Male

DRUGS (2)
  1. FLUOXETINE [Suspect]
     Active Substance: FLUOXETINE\FLUOXETINE HYDROCHLORIDE
     Indication: PRODUCT USED FOR UNKNOWN INDICATION
     Dosage: 20 MG, QD
     Route: 065
  2. PARAMAX [Suspect]
     Active Substance: ACETAMINOPHEN
     Indication: PRODUCT USED FOR UNKNOWN INDICATION
     Route: 065

REACTIONS (10)
  - Alcohol abuse [Unknown]
  - Completed suicide [Fatal]
  - Amnesia [Unknown]
  - Akathisia [Unknown]
  - Confusional state [Unknown]
  - Abnormal dreams [Unknown]
  - Aggression [Unknown]
  - Emotional distress [Unknown]
  - Self esteem decreased [Unknown]
  - Agitation [Unknown]
